FAERS Safety Report 6433304-1 (Version None)
Quarter: 2009Q4

REPORT INFORMATION
  Report Type: 
  Country: None (occurrence: None)
  Receive Date: 20091109
  Receipt Date: 20091030
  Transmission Date: 20100525
  Serious: Yes (Hospitalization, Other)
  Sender: FDA-Public Use
  Company Number: US-GILEAD-2009-0025134

PATIENT
  Sex: Male

DRUGS (8)
  1. ATRIPLA [Suspect]
     Indication: HIV INFECTION
     Dates: start: 20090201, end: 20090901
  2. ATRIPLA [Suspect]
     Dates: start: 20091030
  3. TRUVADA [Suspect]
     Indication: HIV INFECTION
     Dates: start: 20090901, end: 20091030
  4. ISENTRESS [Suspect]
  5. LAMICTAL [Suspect]
  6. KEPPRA [Concomitant]
  7. EPOGEN [Concomitant]
  8. NEUPOGEN [Concomitant]

REACTIONS (4)
  - FACE OEDEMA [None]
  - LIVER FUNCTION TEST ABNORMAL [None]
  - PANCYTOPENIA [None]
  - RASH [None]
